FAERS Safety Report 21734077 (Version 1)
Quarter: 2022Q4

REPORT INFORMATION
  Report Type: Spontaneous
  Country: US (occurrence: US)
  Receive Date: 20221215
  Receipt Date: 20221215
  Transmission Date: 20230113
  Serious: No
  Sender: FDA-Public Use
  Company Number: US-SUN PHARMACEUTICAL INDUSTRIES LTD-2022R1-359291

PATIENT

DRUGS (1)
  1. WINLEVI [Suspect]
     Active Substance: CLASCOTERONE
     Indication: Product used for unknown indication
     Dosage: UNK
     Route: 065
     Dates: start: 20221006

REACTIONS (1)
  - Product storage error [Unknown]

NARRATIVE: CASE EVENT DATE: 20221006
